FAERS Safety Report 8992900 (Version 1)
Quarter: 2013Q1

REPORT INFORMATION
  Report Type: Report from Study
  Country: CA (occurrence: CA)
  Receive Date: 20130102
  Receipt Date: 20130102
  Transmission Date: 20140127
  Serious: Yes (Hospitalization)
  Sender: FDA-Public Use
  Company Number: PHHY2012CA113561

PATIENT
  Age: 55 Year
  Sex: Female

DRUGS (11)
  1. CLOZARIL [Suspect]
     Indication: SCHIZOPHRENIA
     Dosage: UNK UKN, UNK
     Dates: start: 19960908, end: 20121218
  2. INNOHEP [Concomitant]
     Dosage: 0.6 UNK, UNK
     Route: 058
  3. CEFTIN [Concomitant]
     Dosage: 500 MG, 1TAB 2X/DAY, BREAKFAST AND SUPPER
     Route: 048
  4. K-DUR [Concomitant]
     Dosage: 1 DF/DAY
     Route: 048
  5. TYLENOL [Concomitant]
     Dosage: 2 DF, EVERY 4HPRN
  6. DEPAKENE [Concomitant]
     Dosage: 2 DF/ DAY BREAKFAST, SUPPER
     Route: 048
  7. DEPAKENE [Concomitant]
     Dosage: 15 ML, AT BEDTIME
     Route: 048
  8. RISPERDAL [Concomitant]
     Dosage: 1 MG, 1TAB 3X/DAY
     Route: 048
  9. COLACE [Concomitant]
     Dosage: 200 MG, 2 CAP 3X/DAY
     Route: 048
  10. SENOKOT//SENNOSIDE A+B [Concomitant]
     Dosage: 17.2 MG, 2TAB 1-2X/DAY, PRN
     Route: 048
  11. VIT D [Concomitant]
     Dosage: 10000 U, 1TAB/WEEK ON SUNDAY
     Route: 048

REACTIONS (15)
  - Stupor [Unknown]
  - Splenic cyst [Unknown]
  - Calculus bladder [Unknown]
  - Oxygen saturation decreased [Unknown]
  - Hyperadrenalism [Unknown]
  - Blood potassium decreased [Unknown]
  - Toxicity to various agents [Unknown]
  - Pleural effusion [Unknown]
  - Pneumonia [Unknown]
  - Pneumonia aspiration [Unknown]
  - Epilepsy [Unknown]
  - Convulsion [Unknown]
  - Neutropenia [Recovered/Resolved]
  - Leukopenia [Recovered/Resolved]
  - Diarrhoea [Recovered/Resolved]
